FAERS Safety Report 16412118 (Version 1)
Quarter: 2019Q2

REPORT INFORMATION
  Report Type: Spontaneous
  Country: AU (occurrence: AU)
  Receive Date: 20190610
  Receipt Date: 20190610
  Transmission Date: 20190711
  Serious: Yes (Other)
  Sender: FDA-Public Use
  Company Number: AU-009507513-1906AUS002253

PATIENT
  Age: 88 Year
  Sex: Female

DRUGS (1)
  1. PEMBROLIZUMAB. [Suspect]
     Active Substance: PEMBROLIZUMAB
     Indication: SKIN SQUAMOUS CELL CARCINOMA RECURRENT
     Dosage: 95 MG INTRAVENOUSLY, 3 WEEKS APART
     Route: 042

REACTIONS (3)
  - Immune-mediated adverse reaction [Unknown]
  - Granulomatous dermatitis [Unknown]
  - Drug effective for unapproved indication [Unknown]
